FAERS Safety Report 23630016 (Version 2)
Quarter: 2024Q2

REPORT INFORMATION
  Report Type: Spontaneous
  Country: GB (occurrence: GB)
  Receive Date: 20240314
  Receipt Date: 20240410
  Transmission Date: 20240716
  Serious: Yes (Hospitalization, Other)
  Sender: FDA-Public Use
  Company Number: GB-CELLTRION INC.-2022GB016187

PATIENT

DRUGS (1)
  1. INFLIXIMAB [Suspect]
     Active Substance: INFLIXIMAB
     Indication: Colitis ulcerative
     Dosage: 120 MG, Q2WEEKS
     Route: 058
     Dates: start: 202208

REACTIONS (9)
  - Fall [Unknown]
  - Hip fracture [Unknown]
  - Scar [Unknown]
  - Decreased appetite [Unknown]
  - Decubitus ulcer [Unknown]
  - Fatigue [Unknown]
  - Weight decreased [Unknown]
  - Hypoaesthesia [Unknown]
  - Intentional dose omission [Unknown]

NARRATIVE: CASE EVENT DATE: 20220928
